FAERS Safety Report 8757323 (Version 1)
Quarter: 2012Q4

REPORT INFORMATION
  Report Type: 
  Country: IN (occurrence: IN)
  Receive Date: 20120828
  Receipt Date: 20120828
  Transmission Date: 20130627
  Serious: Yes (Death, Hospitalization)
  Sender: FDA-Public Use
  Company Number: IN-SANOFI-AVENTIS-2012SA052700

PATIENT
  Age: 60 Year
  Sex: Male

DRUGS (2)
  1. TAXOTERE [Suspect]
     Indication: LUNG CANCER
     Route: 042
     Dates: start: 20120712
  2. TAXOTERE [Suspect]
     Indication: BONE CANCER
     Route: 042
     Dates: start: 20120712

REACTIONS (3)
  - Tuberculosis [Fatal]
  - Diarrhoea [Fatal]
  - Asthenia [Fatal]
